FAERS Safety Report 18664241 (Version 3)
Quarter: 2021Q1

REPORT INFORMATION
  Report Type: Spontaneous
  Country: GB (occurrence: GB)
  Receive Date: 20201225
  Receipt Date: 20210225
  Transmission Date: 20210419
  Serious: Yes (Other)
  Sender: FDA-Public Use
  Company Number: GB-BIOVITRUM-2020GB7874

PATIENT
  Age: 50 Year
  Sex: Male

DRUGS (65)
  1. NAPROXEN. [Concomitant]
     Active Substance: NAPROXEN
     Dates: start: 2019
  2. SIMVASTATIN. [Concomitant]
     Active Substance: SIMVASTATIN
     Dates: start: 2016
  3. SIMVASTATIN. [Concomitant]
     Active Substance: SIMVASTATIN
     Dates: start: 2017
  4. SIMVASTATIN. [Concomitant]
     Active Substance: SIMVASTATIN
     Dates: start: 2019
  5. OLMESARTAN [Concomitant]
     Active Substance: OLMESARTAN
     Dates: start: 2015
  6. OLMESARTAN [Concomitant]
     Active Substance: OLMESARTAN
     Dates: start: 2016
  7. OLMESARTAN [Concomitant]
     Active Substance: OLMESARTAN
     Dates: start: 2017
  8. OLMESARTAN [Concomitant]
     Active Substance: OLMESARTAN
     Dates: start: 2018
  9. OLMESARTAN [Concomitant]
     Active Substance: OLMESARTAN
     Dates: start: 2019
  10. OLMESARTAN [Concomitant]
     Active Substance: OLMESARTAN
     Dates: start: 2020
  11. ALENDRONIC ACID [Concomitant]
     Active Substance: ALENDRONIC ACID
     Dates: start: 2017
  12. MAGNESIUM SALICYLATE. [Concomitant]
     Active Substance: MAGNESIUM SALICYLATE
     Dates: start: 2016
  13. ADCAL D3 [Concomitant]
     Active Substance: CALCIUM CARBONATE\CHOLECALCIFEROL
     Dates: start: 2019
  14. MORPHINE SULPHATE [Concomitant]
     Active Substance: MORPHINE SULFATE
     Dates: start: 2012
  15. COCODAMOL [Concomitant]
     Active Substance: ACETAMINOPHEN\CODEINE PHOSPHATE
     Dates: start: 2015
  16. COCODAMOL [Concomitant]
     Active Substance: ACETAMINOPHEN\CODEINE PHOSPHATE
     Dates: start: 2016
  17. OLMESARTAN [Concomitant]
     Active Substance: OLMESARTAN
     Dates: start: 2014
  18. ALENDRONIC ACID [Concomitant]
     Active Substance: ALENDRONIC ACID
     Dates: start: 2018
  19. CALCIUM AND VIT D [Concomitant]
     Active Substance: CALCIUM\VITAMIN D
     Dates: start: 2017
  20. NAPROXEN. [Concomitant]
     Active Substance: NAPROXEN
     Dosage: PRN
     Dates: start: 2020
  21. SIMVASTATIN. [Concomitant]
     Active Substance: SIMVASTATIN
     Dates: start: 2012
  22. OMEPRAZOLE. [Concomitant]
     Active Substance: OMEPRAZOLE
     Dates: start: 2013
  23. OMEPRAZOLE. [Concomitant]
     Active Substance: OMEPRAZOLE
     Dates: start: 2018
  24. CALCIUM AND VIT D [Concomitant]
     Active Substance: CALCIUM\VITAMIN D
     Dates: start: 2013
  25. OLMESARTAN [Concomitant]
     Active Substance: OLMESARTAN
     Dates: start: 2012
  26. ALENDRONIC ACID [Concomitant]
     Active Substance: ALENDRONIC ACID
     Dates: start: 2013
  27. ALENDRONIC ACID [Concomitant]
     Active Substance: ALENDRONIC ACID
     Dates: start: 2015
  28. MULTI VITAMIN [Concomitant]
     Active Substance: VITAMINS
     Dates: start: 2015
  29. SOLIFENACIN [Concomitant]
     Active Substance: SOLIFENACIN
     Dates: start: 2019
  30. ORFADIN [Suspect]
     Active Substance: NITISINONE
     Indication: ALKAPTONURIA
     Dates: start: 2012
  31. NAPROXEN. [Concomitant]
     Active Substance: NAPROXEN
     Dates: start: 2015
  32. SIMVASTATIN. [Concomitant]
     Active Substance: SIMVASTATIN
     Dates: start: 2013
  33. SIMVASTATIN. [Concomitant]
     Active Substance: SIMVASTATIN
     Dates: start: 2015
  34. OMEPRAZOLE. [Concomitant]
     Active Substance: OMEPRAZOLE
     Dates: start: 2012
  35. CALCIUM AND VIT D [Concomitant]
     Active Substance: CALCIUM\VITAMIN D
     Dates: start: 2016
  36. CALCIUM AND VIT D [Concomitant]
     Active Substance: CALCIUM\VITAMIN D
     Dates: start: 2020
  37. MULTI VITAMIN [Concomitant]
     Active Substance: VITAMINS
     Dates: start: 2013
  38. MULTI VITAMIN [Concomitant]
     Active Substance: VITAMINS
     Dates: start: 2016
  39. DIAZEPAM. [Concomitant]
     Active Substance: DIAZEPAM
     Dates: start: 2013
  40. SOLIFENACIN [Concomitant]
     Active Substance: SOLIFENACIN
     Dates: start: 2020
  41. NAPROXEN. [Concomitant]
     Active Substance: NAPROXEN
     Dates: start: 2016
  42. OMEPRAZOLE. [Concomitant]
     Active Substance: OMEPRAZOLE
     Dates: start: 2020
  43. CALCIUM AND VIT D [Concomitant]
     Active Substance: CALCIUM\VITAMIN D
     Dates: start: 2014
  44. MULTI VITAMIN [Concomitant]
     Active Substance: VITAMINS
     Dates: start: 2017
  45. MAGNESIUM SALICYLATE. [Concomitant]
     Active Substance: MAGNESIUM SALICYLATE
     Dates: start: 2015
  46. CODEINE [Concomitant]
     Active Substance: CODEINE
     Dosage: PRN
     Dates: start: 2020
  47. NAPROXEN. [Concomitant]
     Active Substance: NAPROXEN
     Dates: start: 2017
  48. SIMVASTATIN. [Concomitant]
     Active Substance: SIMVASTATIN
     Dates: start: 2014
  49. SIMVASTATIN. [Concomitant]
     Active Substance: SIMVASTATIN
     Dates: start: 2018
  50. OLMESARTAN [Concomitant]
     Active Substance: OLMESARTAN
     Dates: start: 2013
  51. OMEPRAZOLE. [Concomitant]
     Active Substance: OMEPRAZOLE
     Dates: start: 2014
  52. OMEPRAZOLE. [Concomitant]
     Active Substance: OMEPRAZOLE
     Dates: start: 2015
  53. OMEPRAZOLE. [Concomitant]
     Active Substance: OMEPRAZOLE
     Dates: start: 2016
  54. ALENDRONIC ACID [Concomitant]
     Active Substance: ALENDRONIC ACID
  55. FERROUS FUMARATE [Concomitant]
     Active Substance: FERROUS FUMARATE
     Dates: start: 2015
  56. NAPROXEN. [Concomitant]
     Active Substance: NAPROXEN
     Dates: start: 2012
  57. NAPROXEN. [Concomitant]
     Active Substance: NAPROXEN
     Dates: start: 2018
  58. COCODAMOL [Concomitant]
     Active Substance: ACETAMINOPHEN\CODEINE PHOSPHATE
     Dates: start: 2012
  59. SIMVASTATIN. [Concomitant]
     Active Substance: SIMVASTATIN
     Dates: start: 2020
  60. OMEPRAZOLE. [Concomitant]
     Active Substance: OMEPRAZOLE
     Dates: start: 2017
  61. OMEPRAZOLE. [Concomitant]
     Active Substance: OMEPRAZOLE
     Dates: start: 2019
  62. ALENDRONIC ACID [Concomitant]
     Active Substance: ALENDRONIC ACID
     Dates: start: 2016
  63. CALCIUM AND VIT D [Concomitant]
     Active Substance: CALCIUM\VITAMIN D
     Dates: start: 2015
  64. CALCIUM AND VIT D [Concomitant]
     Active Substance: CALCIUM\VITAMIN D
     Dosage: 500G/400IU
     Dates: start: 2018
  65. FERROUS FUMARATE [Concomitant]
     Active Substance: FERROUS FUMARATE
     Dates: start: 2016

REACTIONS (3)
  - Lenticular opacities [Not Recovered/Not Resolved]
  - Cataract [Not Recovered/Not Resolved]
  - Amino acid level increased [Not Recovered/Not Resolved]

NARRATIVE: CASE EVENT DATE: 2012
